FAERS Safety Report 15094566 (Version 1)
Quarter: 2018Q2

REPORT INFORMATION
  Report Type: Report from Study
  Country: US (occurrence: US)
  Receive Date: 20180630
  Receipt Date: 20180630
  Transmission Date: 20180711
  Serious: Yes (Other)
  Sender: FDA-Public Use
  Company Number: US-TESARO, INC-US-2018TSO00925

PATIENT

DRUGS (13)
  1. ZEJULA [Suspect]
     Active Substance: NIRAPARIB
     Indication: SQUAMOUS CELL CARCINOMA OF THE VAGINA
     Dosage: 200 MG, QD
     Route: 048
     Dates: start: 20171219
  2. ZEJULA [Suspect]
     Active Substance: NIRAPARIB
     Dosage: 100 MG, QD
     Route: 048
     Dates: end: 20180608
  3. ZEJULA [Suspect]
     Active Substance: NIRAPARIB
     Indication: BREAST CANCER
     Dosage: 300 MG, QD
     Route: 048
     Dates: start: 20171101, end: 20171127
  4. ZEJULA [Suspect]
     Active Substance: NIRAPARIB
     Indication: PANCREATIC CARCINOMA
     Dosage: 100 MG, QD
     Route: 048
  5. ZEJULA [Suspect]
     Active Substance: NIRAPARIB
     Indication: UTERINE CANCER
     Dosage: 300 MG, QD
     Route: 048
     Dates: start: 20171016
  6. ZOFRAN [Concomitant]
     Active Substance: ONDANSETRON HYDROCHLORIDE
     Indication: PRODUCT USED FOR UNKNOWN INDICATION
     Dosage: 4 MG, QD
  7. ZEJULA [Suspect]
     Active Substance: NIRAPARIB
     Indication: VAGINAL CANCER
     Dosage: 100 MG, QD
     Route: 048
  8. VITAMIN B COMPLEX [Concomitant]
     Active Substance: CYANOCOBALAMIN\DEXPANTHENOL\NIACINAMIDE\PYRIDOXINE HYDROCHLORIDE\RIBOFLAVIN 5^-PHOSPHATE SODIUM\THIAMINE HYDROCHLORIDE\VITAMIN B COMPLEX
     Indication: PRODUCT USED FOR UNKNOWN INDICATION
     Dosage: 1 DF, QD
  9. TYLENOL [Concomitant]
     Active Substance: ACETAMINOPHEN
     Indication: DISCOMFORT
     Dosage: 650 MG, PRN
  10. BENADRYL [Concomitant]
     Active Substance: DIPHENHYDRAMINE HYDROCHLORIDE
     Indication: HYPERSENSITIVITY
     Dosage: 25 MG, QD
  11. ZEJULA [Suspect]
     Active Substance: NIRAPARIB
     Dosage: 100 MG, QD
     Route: 048
  12. MULTIVITAMINS PLUS IRON [Concomitant]
     Active Substance: IRON\VITAMINS
     Indication: PRODUCT USED FOR UNKNOWN INDICATION
     Dosage: 1 DF, QD
  13. VITAMIN D                          /00107901/ [Concomitant]
     Active Substance: ERGOCALCIFEROL
     Indication: PRODUCT USED FOR UNKNOWN INDICATION
     Dosage: 1 DF, QD

REACTIONS (6)
  - Faeces hard [Not Recovered/Not Resolved]
  - Blood count abnormal [Not Recovered/Not Resolved]
  - Emotional distress [Unknown]
  - Haematotoxicity [Unknown]
  - Blood pressure increased [Recovered/Resolved]
  - Constipation [Not Recovered/Not Resolved]
